FAERS Safety Report 15116690 (Version 1)
Quarter: 2018Q3

REPORT INFORMATION
  Report Type: Spontaneous
  Country: US (occurrence: US)
  Receive Date: 20180706
  Receipt Date: 20180706
  Transmission Date: 20181010
  Serious: Yes (Disabling)
  Sender: FDA-Public Use
  Company Number: US-IGSA-SR10006550

PATIENT
  Age: 64 Year
  Sex: Female
  Weight: 64 kg

DRUGS (3)
  1. BENADRYL [Concomitant]
     Active Substance: DIPHENHYDRAMINE HYDROCHLORIDE
     Indication: ALLERGY TO PLANTS
     Dosage: UNK UNK, QD
  2. GAMUNEX?C [Suspect]
     Active Substance: HUMAN IMMUNOGLOBULIN G
     Indication: CHRONIC INFLAMMATORY DEMYELINATING POLYRADICULONEUROPATHY
     Dosage: UNK
     Route: 042
     Dates: start: 20180517
  3. GAMUNEX?C [Suspect]
     Active Substance: HUMAN IMMUNOGLOBULIN G
     Dosage: UNK, QD
     Route: 042
     Dates: start: 20180607

REACTIONS (7)
  - Headache [Recovered/Resolved]
  - Medication error [Recovered/Resolved]
  - Back pain [Recovered/Resolved]
  - Infusion site pain [Recovered/Resolved]
  - Meningitis aseptic [Recovered/Resolved]
  - Decreased appetite [Recovered/Resolved]
  - Sleep deficit [Recovered/Resolved]

NARRATIVE: CASE EVENT DATE: 20180517
